FAERS Safety Report 7910243-8 (Version None)
Quarter: 2011Q4

REPORT INFORMATION
  Report Type: 
  Country: None (occurrence: None)
  Receive Date: 20111111
  Receipt Date: 20111104
  Transmission Date: 20120403
  Serious: Yes (Other)
  Sender: FDA-Public Use
  Company Number: US-AMGEN-USASP2011058197

PATIENT
  Sex: Female

DRUGS (5)
  1. VICODIN [Concomitant]
     Dosage: UNK
  2. SYNTHROID [Concomitant]
     Dosage: UNK
  3. ENBREL [Suspect]
     Indication: FIBROMYALGIA
     Dosage: UNK UNK, QWK
  4. TENORMIN [Concomitant]
     Dosage: UNK
  5. MAXIDENE [Concomitant]
     Dosage: UNK

REACTIONS (11)
  - OSTEOPENIA [None]
  - PAIN [None]
  - DRY MOUTH [None]
  - WEIGHT DECREASED [None]
  - BONE DENSITY DECREASED [None]
  - DEPRESSION [None]
  - CHRONIC INFLAMMATORY DEMYELINATING POLYRADICULONEUROPATHY [None]
  - GINGIVAL ABSCESS [None]
  - TOOTH LOSS [None]
  - UPPER LIMB FRACTURE [None]
  - OSTEOARTHRITIS [None]
